FAERS Safety Report 6902263-7 (Version None)
Quarter: 2010Q3

REPORT INFORMATION
  Report Type: 
  Country: None (occurrence: None)
  Receive Date: 20100803
  Receipt Date: 20080505
  Transmission Date: 20110219
  Serious: Yes (Other)
  Sender: FDA-Public Use
  Company Number: US-PFIZER INC-2008037316

PATIENT
  Sex: Female
  Weight: 59.09 kg

DRUGS (7)
  1. LYRICA [Suspect]
     Indication: FIBROMYALGIA
     Dates: start: 20070201, end: 20080301
  2. LYRICA [Suspect]
     Indication: NEUROPATHY PERIPHERAL
  3. LYRICA [Suspect]
     Indication: HERPES ZOSTER
  4. LORTAB [Concomitant]
  5. VALIUM [Concomitant]
     Indication: ANXIETY
  6. KLONOPIN [Concomitant]
     Indication: ANXIETY
  7. MEPERGAN [Concomitant]

REACTIONS (5)
  - BACK PAIN [None]
  - DRUG INEFFECTIVE [None]
  - FATIGUE [None]
  - NECK PAIN [None]
  - WEIGHT INCREASED [None]
